FAERS Safety Report 9615532 (Version 1)
Quarter: 2013Q4

REPORT INFORMATION
  Report Type: Spontaneous
  Country: US (occurrence: None)
  Receive Date: 20131010
  Receipt Date: 20131010
  Transmission Date: 20140711
  Serious: Yes (Life-Threatening)
  Sender: FDA-Public Use
  Company Number: None

PATIENT
  Age: 47 Year
  Sex: Female
  Weight: 56.7 kg

DRUGS (1)
  1. BOTOX [Suspect]
     Indication: MIGRAINE

REACTIONS (5)
  - Hypersensitivity [None]
  - Dysphagia [None]
  - Eating disorder [None]
  - Musculoskeletal stiffness [None]
  - Neck pain [None]
